FAERS Safety Report 5332467-9 (Version None)
Quarter: 2007Q2

REPORT INFORMATION
  Report Type: 
  Country: None (occurrence: None)
  Receive Date: 20070521
  Receipt Date: 20070509
  Transmission Date: 20071010
  Serious: Yes (Hospitalization)
  Sender: FDA-Public Use
  Company Number: URSO-2007-122

PATIENT
  Sex: Female

DRUGS (3)
  1. URSODIOL [Suspect]
     Indication: CHOLESTASIS OF PREGNANCY
     Dosage: 14MG/KG FROM WEEK 31 TO 34 AND 35 TO 39 OF GESTATION
     Route: 048
  2. BETAMETHASONE [Concomitant]
  3. CHOLESTYRAMINE [Concomitant]

REACTIONS (2)
  - DRUG EXPOSURE DURING PREGNANCY [None]
  - INTRA-UTERINE DEATH [None]
